FAERS Safety Report 5921544-7 (Version None)
Quarter: 2008Q3

REPORT INFORMATION
  Report Type: 
  Country: None (occurrence: None)
  Receive Date: 20080909
  Receipt Date: 20071030
  Transmission Date: 20090109
  Serious: Yes (Death, Hospitalization)
  Sender: FDA-Public Use
  Company Number: 163-20785-07100031

PATIENT
  Age: 63 Year
  Sex: Female

DRUGS (4)
  1. THALOMID [Suspect]
     Indication: MULTIPLE MYELOMA
     Dosage: 100 MG, 1 IN 1 D, ORAL ; 200 MG, 4 IN 1 D, ORAL
     Route: 048
     Dates: start: 20070727, end: 20070801
  2. THALOMID [Suspect]
     Indication: MULTIPLE MYELOMA
     Dosage: 100 MG, 1 IN 1 D, ORAL ; 200 MG, 4 IN 1 D, ORAL
     Route: 048
     Dates: start: 20070820
  3. VELCADE [Concomitant]
  4. COUMADIN [Concomitant]

REACTIONS (4)
  - DISEASE PROGRESSION [None]
  - GASTROINTESTINAL HAEMORRHAGE [None]
  - MULTIPLE MYELOMA [None]
  - RENAL FAILURE [None]
